FAERS Safety Report 25750242 (Version 2)
Quarter: 2025Q3

REPORT INFORMATION
  Report Type: Spontaneous
  Country: EU (occurrence: EU)
  Receive Date: 20250902
  Receipt Date: 20250908
  Transmission Date: 20251021
  Serious: Yes (Hospitalization)
  Sender: MYLAN
  Company Number: EU-MYLANLABS-2025M1073162

PATIENT
  Sex: Female

DRUGS (2)
  1. CLOZAPINE [Suspect]
     Active Substance: CLOZAPINE
  2. CLOZAPINE [Suspect]
     Active Substance: CLOZAPINE
     Dosage: 150 MILLIGRAM, QD (PER DAY)

REACTIONS (5)
  - Schizophrenia [Recovering/Resolving]
  - Drug intolerance [Recovered/Resolved]
  - Blood glucose increased [Recovered/Resolved]
  - Salivary hypersecretion [Recovered/Resolved]
  - Weight increased [Recovered/Resolved]
